FAERS Safety Report 7880044-8 (Version None)
Quarter: 2011Q4

REPORT INFORMATION
  Report Type: 
  Country: None (occurrence: None)
  Receive Date: 20111101
  Receipt Date: 20111004
  Transmission Date: 20120403
  Serious: Yes (Hospitalization)
  Sender: FDA-Public Use
  Company Number: US-ROCHE-766582

PATIENT
  Age: 52 Year
  Sex: Female
  Weight: 61.2 kg

DRUGS (3)
  1. AVASTIN [Suspect]
     Indication: GLIOBLASTOMA MULTIFORME
     Dosage: FREQ: OVER 30-90 MIN ON DAY 1 OF WEEK 4 AND 6, LAST DOSE: 14 JUNE 2011
     Route: 042
  2. TEMOZOLOMIDE [Suspect]
     Indication: GLIOBLASTOMA MULTIFORME
     Dosage: DOSE: 150-200MG/M2 ORALLY ON DAYS 1-5, TOTAL DOSE RECEIVED: 1250 MG, LAST DOSE: 18 JUNE 2011.
     Route: 048
  3. LEVETIRACETAM [Suspect]
     Indication: PRODUCT USED FOR UNKNOWN INDICATION
     Route: 065

REACTIONS (1)
  - CONVULSION [None]
